FAERS Safety Report 20067852 (Version 1)
Quarter: 2021Q4

REPORT INFORMATION
  Report Type: Spontaneous
  Country: US (occurrence: US)
  Receive Date: 20211115
  Receipt Date: 20211115
  Transmission Date: 20220303
  Serious: Yes (Death)
  Sender: FDA-Public Use
  Company Number: US-BAYER-2021A242427

PATIENT
  Age: 71 Year
  Sex: Female

DRUGS (1)
  1. STIVARGA [Suspect]
     Active Substance: REGORAFENIB
     Indication: Lung neoplasm malignant
     Dosage: UNK

REACTIONS (2)
  - Death [Fatal]
  - Off label use [None]

NARRATIVE: CASE EVENT DATE: 20211021
